FAERS Safety Report 8565397 (Version 2)
Quarter: 2013Q4

REPORT INFORMATION
  Report Type: Report from Study
  Country: CA (occurrence: CA)
  Receive Date: 20120516
  Receipt Date: 20131218
  Transmission Date: 20140711
  Serious: Yes (Death)
  Sender: FDA-Public Use
  Company Number: CA-ROCHE-1065355

PATIENT
  Sex: Female

DRUGS (7)
  1. XELODA [Suspect]
     Indication: SMALL CELL CARCINOMA
     Route: 048
     Dates: start: 20120214, end: 201204
  2. FRAGMIN [Concomitant]
  3. GABAPENTIN [Concomitant]
  4. DOCUSATE [Concomitant]
  5. RISEDRONATE [Concomitant]
  6. SENOKOT [Concomitant]
  7. MEGESTROL [Concomitant]

REACTIONS (1)
  - Death [Fatal]
